FAERS Safety Report 9714702 (Version 3)
Quarter: 2014Q1

REPORT INFORMATION
  Report Type: Spontaneous
  Country: DE (occurrence: None)
  Receive Date: 20131125
  Receipt Date: 20140221
  Transmission Date: 20141002
  Serious: Yes (Hospitalization, Other)
  Sender: FDA-Public Use
  Company Number: 1311-1509

PATIENT
  Age: 49 Year
  Sex: Male
  Weight: 73.5 kg

DRUGS (8)
  1. VEGF TRAP-EYE [Suspect]
     Indication: DIABETIC RETINAL OEDEMA
     Dosage: 2 MG, 1 IN 8 EK, INTRAOCULAR
     Route: 031
     Dates: start: 20111115
  2. LANTUS (INSULIN GLARGINE) [Concomitant]
  3. NOVORAPID (INSULIN ASPART) [Concomitant]
  4. DUODART (DUTAS-T) [Concomitant]
  5. INSULIN (INSULIN) [Concomitant]
  6. AZITHROMYCIN (AZITHROMYCIN) [Concomitant]
  7. METRONIDAZOLE (METRONIDAZOLE) [Concomitant]
  8. AUGMENTIN DUO FORTE [Concomitant]

REACTIONS (4)
  - Metabolic acidosis [None]
  - Diabetic ketoacidosis [None]
  - Diabetic hyperosmolar coma [None]
  - Renal impairment [None]
